FAERS Safety Report 6931256-9 (Version None)
Quarter: 2010Q3

REPORT INFORMATION
  Report Type: 
  Country: None (occurrence: None)
  Receive Date: 20100818
  Receipt Date: 20100810
  Transmission Date: 20110219
  Serious: Yes (Other)
  Sender: FDA-Public Use
  Company Number: US-AMGEN-QUU430451

PATIENT
  Sex: Male

DRUGS (2)
  1. ENBREL [Suspect]
     Indication: PSORIATIC ARTHROPATHY
     Route: 058
     Dates: end: 20100601
  2. ENBREL [Suspect]
     Indication: PSORIASIS

REACTIONS (6)
  - BLOOD CREATININE INCREASED [None]
  - COCCIDIOIDOMYCOSIS [None]
  - MUSCULOSKELETAL STIFFNESS [None]
  - NEOPLASM [None]
  - PSORIASIS [None]
  - PULMONARY GRANULOMA [None]
